FAERS Safety Report 6637706-X (Version None)
Quarter: 2010Q1

REPORT INFORMATION
  Report Type: 
  Country: None (occurrence: None)
  Receive Date: 20100315
  Receipt Date: 20100315
  Transmission Date: 20100710
  Serious: Yes (Hospitalization)
  Sender: FDA-Public Use
  Company Number: None

PATIENT
  Sex: Female
  Weight: 84.1 kg

DRUGS (7)
  1. CREST WHITENING RINSE, FRESH MINT FLAVOR LIQUID (WATER, GLYCERIN, HYDR [Suspect]
     Indication: DENTAL DISORDER PROPHYLAXIS
     Dosage: 1 APPLICATION 1/DAY INTRAORAL
     Dates: start: 20090621, end: 20090622
  2. CRYSELLE [Concomitant]
  3. AMBIEN [Concomitant]
  4. LO/OVRAL [Concomitant]
  5. FLEXERIL [Concomitant]
  6. PHENERGAN (PROMETHAZINE) [Concomitant]
  7. IMITREX [Concomitant]

REACTIONS (85)
  - ABDOMINAL TENDERNESS [None]
  - ANXIETY [None]
  - APHTHOUS STOMATITIS [None]
  - ASTHENIA [None]
  - BLISTER [None]
  - BLOOD ALBUMIN DECREASED [None]
  - BLOOD CALCIUM DECREASED [None]
  - BLOOD GLUCOSE INCREASED [None]
  - CANDIDIASIS [None]
  - CAUSTIC INJURY [None]
  - CHEILITIS [None]
  - CHILLS [None]
  - DEHYDRATION [None]
  - DIZZINESS [None]
  - DYSGEUSIA [None]
  - DYSPHAGIA [None]
  - DYSPHONIA [None]
  - DYSPNOEA [None]
  - EMOTIONAL DISTRESS [None]
  - EPSTEIN-BARR VIRUS ANTIBODY POSITIVE [None]
  - EXPIRED DRUG ADMINISTERED [None]
  - EXTERNAL EAR INFLAMMATION [None]
  - EYE SWELLING [None]
  - FACE OEDEMA [None]
  - GINGIVAL BLISTER [None]
  - GINGIVAL ULCERATION [None]
  - GINGIVITIS [None]
  - GLOSSITIS [None]
  - GLOSSODYNIA [None]
  - HAEMOGLOBIN INCREASED [None]
  - HYPERSENSITIVITY [None]
  - HYPOPHAGIA [None]
  - INSOMNIA [None]
  - LETHARGY [None]
  - LIP BLISTER [None]
  - LIP DISORDER [None]
  - LIP EXFOLIATION [None]
  - LIP PAIN [None]
  - LIP SWELLING [None]
  - LIP ULCERATION [None]
  - LYMPH NODE PAIN [None]
  - LYMPHADENOPATHY [None]
  - MOUTH INJURY [None]
  - MOUTH ULCERATION [None]
  - MUCOSAL DRYNESS [None]
  - MUCOSAL INFLAMMATION [None]
  - NEUTROPHIL COUNT INCREASED [None]
  - ODYNOPHAGIA [None]
  - ORAL CANDIDIASIS [None]
  - ORAL DISCOMFORT [None]
  - ORAL DISORDER [None]
  - ORAL INFECTION [None]
  - ORAL MUCOSAL DISCOLOURATION [None]
  - ORAL MUCOSAL ERYTHEMA [None]
  - ORAL MUCOSAL EXFOLIATION [None]
  - ORAL PAIN [None]
  - OROPHARYNGEAL BLISTERING [None]
  - OROPHARYNGEAL PAIN [None]
  - PALATAL DISORDER [None]
  - PARAESTHESIA ORAL [None]
  - PHARYNGEAL DISORDER [None]
  - PHARYNGEAL ULCERATION [None]
  - PRESYNCOPE [None]
  - PROTEIN URINE PRESENT [None]
  - PYREXIA [None]
  - RASH [None]
  - RED BLOOD CELL SEDIMENTATION RATE INCREASED [None]
  - SCAB [None]
  - SCAR [None]
  - SKIN ULCER [None]
  - SPECIFIC GRAVITY URINE INCREASED [None]
  - STOMATITIS [None]
  - STRIDOR [None]
  - SWOLLEN TONGUE [None]
  - SYNCOPE [None]
  - THROAT TIGHTNESS [None]
  - TONGUE BLISTERING [None]
  - TONGUE COATED [None]
  - TONGUE DISCOLOURATION [None]
  - TONGUE DISORDER [None]
  - TONGUE ULCERATION [None]
  - URINARY SEDIMENT PRESENT [None]
  - URINE KETONE BODY PRESENT [None]
  - URINE OUTPUT DECREASED [None]
  - WHITE BLOOD CELL COUNT INCREASED [None]
